FAERS Safety Report 4866542-X (Version None)
Quarter: 2005Q4

REPORT INFORMATION
  Report Type: 
  Country: None (occurrence: None)
  Receive Date: 20051221
  Receipt Date: 20051209
  Transmission Date: 20060501
  Serious: Yes (Other)
  Sender: FDA-Public Use
  Company Number: 2005166117

PATIENT
  Sex: Female

DRUGS (7)
  1. CELEBREX [Suspect]
     Indication: PAIN
     Dosage: 200 MG (200 MG, 1 IN 1 D)
  2. CELEBREX [Suspect]
     Indication: SWELLING
     Dosage: 200 MG (200 MG, 1 IN 1 D)
  3. CALCIUM (CALCIUM) [Concomitant]
  4. VITAMIN E [Concomitant]
  5. NEXIUM [Concomitant]
  6. PREMARIN [Concomitant]
  7. ACETAMINOPHEN [Concomitant]

REACTIONS (7)
  - ABASIA [None]
  - ABDOMINAL PAIN UPPER [None]
  - EATING DISORDER [None]
  - FALL [None]
  - HAEMORRHAGE [None]
  - HIP ARTHROPLASTY [None]
  - WEIGHT DECREASED [None]
